FAERS Safety Report 5216404-3 (Version None)
Quarter: 2007Q1

REPORT INFORMATION
  Report Type: 
  Country: None (occurrence: None)
  Receive Date: 20061124
  Receipt Date: 20060908
  Transmission Date: 20070707
  Serious: Yes (Hospitalization)
  Sender: FDA-Public Use
  Company Number: WAES 0609USA02025

PATIENT
  Age: 75 Year
  Sex: Male

DRUGS (1)
  1. VYTORIN [Suspect]
     Indication: BLOOD CHOLESTEROL
     Dosage: PO
     Route: 048
     Dates: start: 20060201, end: 20060313

REACTIONS (6)
  - ASTHENIA [None]
  - CONTUSION [None]
  - DEPRESSION [None]
  - PANCREATITIS [None]
  - PNEUMONIA [None]
  - RENAL CYST [None]
